FAERS Safety Report 24030079 (Version 1)
Quarter: 2024Q2

REPORT INFORMATION
  Report Type: Spontaneous
  Country: US (occurrence: US)
  Receive Date: 20240628
  Receipt Date: 20240628
  Transmission Date: 20240715
  Serious: No
  Sender: FDA-Public Use
  Company Number: US-PFIZER INC-202400201131

PATIENT
  Age: 65 Year

DRUGS (2)
  1. PAXLOVID [Suspect]
     Active Substance: NIRMATRELVIR\RITONAVIR
     Indication: COVID-19 treatment
     Dosage: UNK
  2. MEDROL [Suspect]
     Active Substance: METHYLPREDNISOLONE
     Indication: Oropharyngeal pain
     Dosage: UNK

REACTIONS (4)
  - Heart rate increased [Unknown]
  - Palpitations [Unknown]
  - Dysgeusia [Unknown]
  - Off label use [Unknown]
